FAERS Safety Report 4835323-5 (Version None)
Quarter: 2005Q4

REPORT INFORMATION
  Report Type: 
  Country: None (occurrence: None)
  Receive Date: 20051118
  Receipt Date: 20051108
  Transmission Date: 20060501
  Serious: Yes (Other)
  Sender: FDA-Public Use
  Company Number: 2005BH002788

PATIENT
  Age: 5 Year
  Sex: Female
  Weight: 21.7727 kg

DRUGS (1)
  1. LACTATED RINGER'S IN PLASTIC CONTAINER [Suspect]
     Dosage: 20 ML; IV
     Route: 042
     Dates: start: 20051108

REACTIONS (1)
  - RASH ERYTHEMATOUS [None]
